FAERS Safety Report 4375525-8 (Version None)
Quarter: 2004Q2

REPORT INFORMATION
  Report Type: 
  Country: None (occurrence: None)
  Receive Date: 20040610
  Receipt Date: 20040603
  Transmission Date: 20050107
  Serious: Yes (Congenital Anomaly)
  Sender: FDA-Public Use
  Company Number: FR-ROCHE-370105

PATIENT
  Age: 39 Year
  Sex: Female

DRUGS (3)
  1. VALIUM [Suspect]
     Indication: EPILEPSY
     Route: 048
  2. VALPROIC ACID [Suspect]
     Indication: EPILEPSY
     Route: 048
  3. LAMICTAL [Suspect]
     Indication: EPILEPSY
     Route: 048

REACTIONS (4)
  - ABORTION INDUCED [None]
  - MATERNAL DRUGS AFFECTING FOETUS [None]
  - MICROCEPHALY [None]
  - TALIPES [None]
